FAERS Safety Report 5840040-9 (Version None)
Quarter: 2008Q3

REPORT INFORMATION
  Report Type: 
  Country: None (occurrence: None)
  Receive Date: 20080811
  Receipt Date: 20070808
  Transmission Date: 20090109
  Serious: Yes (Life-Threatening, Hospitalization, Other)
  Sender: FDA-Public Use
  Company Number: US-BAYER-200714776GDS

PATIENT
  Age: 66 Year
  Sex: Male

DRUGS (17)
  1. APROTININ [Suspect]
     Indication: MITRAL VALVE REPAIR
     Route: 042
  2. APROTININ [Suspect]
     Route: 042
  3. METOPROLOL SUCCINATE [Concomitant]
     Indication: CARDIAC FAILURE CONGESTIVE
     Route: 048
  4. FUROSEMIDE [Concomitant]
     Indication: CARDIAC FAILURE CONGESTIVE
     Route: 048
  5. SPIRONOLACTONE [Concomitant]
     Indication: CARDIAC FAILURE CONGESTIVE
     Route: 048
  6. LISINOPRIL [Concomitant]
     Indication: CARDIAC FAILURE CONGESTIVE
     Route: 048
  7. NITROGLYCERIN [Concomitant]
     Indication: CARDIAC FAILURE CONGESTIVE
     Route: 060
  8. COUMADIN [Concomitant]
     Indication: ATRIAL FIBRILLATION
     Route: 065
  9. MIDAZOLAM HCL [Concomitant]
     Indication: ANAESTHESIA
     Route: 042
  10. FENTANYL [Concomitant]
     Indication: ANAESTHESIA
     Route: 042
  11. FENTANYL [Concomitant]
     Route: 042
  12. FENTANYL [Concomitant]
     Route: 042
  13. ETOMIDATE [Concomitant]
     Indication: ANAESTHESIA
     Route: 042
  14. PANCURONIUM [Concomitant]
     Indication: ANAESTHESIA
     Route: 042
  15. ISOFLURANE [Concomitant]
     Indication: ANAESTHESIA
     Route: 065
  16. PROPOFOL [Concomitant]
     Indication: ANAESTHESIA
     Route: 065
  17. PANCURONIUM [Concomitant]
     Route: 042

REACTIONS (3)
  - ANAPHYLACTIC SHOCK [None]
  - HYPOTENSION [None]
  - OBSTRUCTIVE AIRWAYS DISORDER [None]
